FAERS Safety Report 11022123 (Version 2)
Quarter: 2015Q2

REPORT INFORMATION
  Report Type: Spontaneous
  Country: US (occurrence: US)
  Receive Date: 20150413
  Receipt Date: 20150414
  Transmission Date: 20150821
  Serious: Yes (Other)
  Sender: FDA-Public Use
  Company Number: US-PFIZER INC-2015121474

PATIENT
  Age: 54 Year
  Sex: Female

DRUGS (13)
  1. METOPROLOL TARTRATE. [Concomitant]
     Active Substance: METOPROLOL TARTRATE
     Dosage: 50 MG, 2X/DAY
     Route: 048
  2. POTASSIUM CHLORIDE. [Concomitant]
     Active Substance: POTASSIUM CHLORIDE
     Dosage: 2 MEQ, 1X/DAY
  3. LASIX [Concomitant]
     Active Substance: FUROSEMIDE
     Dosage: 20 MG, DAILY
     Route: 048
  4. VITAMIN D2 [Concomitant]
     Active Substance: ERGOCALCIFEROL
     Dosage: 50.000 IU, 3X/DAY
     Route: 048
  5. BENADRYL ALLERGY [Concomitant]
     Active Substance: DIPHENHYDRAMINE HYDROCHLORIDE
     Dosage: 25 MG, UNK
  6. LYRICA [Suspect]
     Active Substance: PREGABALIN
     Dosage: 150 MG, 3X/DAY
     Route: 048
  7. GENOTROPIN [Suspect]
     Active Substance: SOMATROPIN
     Dosage: 13.8MG/1VIA POWDER FOR INJECTION SQ 0.6 CC^S ONCE DAILY
  8. LISINOPRIL. [Concomitant]
     Active Substance: LISINOPRIL
     Dosage: 10 MG, 2X/DAY
     Route: 048
  9. XANAX [Suspect]
     Active Substance: ALPRAZOLAM
     Dosage: 0.5 MG, 2X/DAY
     Route: 048
  10. SIMVASTATIN. [Concomitant]
     Active Substance: SIMVASTATIN
     Dosage: 5 MG, DAILY (10MG TABLET TAKE ? TABLET DAILY AT HS)
  11. TORADOL [Concomitant]
     Active Substance: KETOROLAC TROMETHAMINE
     Dosage: 10 MG, UNK (Q 4 TO 6 (NOT TO EXCEED 40MG IN 24 HRS))
     Route: 048
  12. NEXIUM [Concomitant]
     Active Substance: ESOMEPRAZOLE MAGNESIUM
     Dosage: 40 MG, 1X/DAY
     Route: 048
  13. METFORMIN HCL [Concomitant]
     Active Substance: METFORMIN HYDROCHLORIDE
     Dosage: 250 MG, 2X/DAY
     Route: 048

REACTIONS (12)
  - Cerumen impaction [Unknown]
  - Eye pain [Unknown]
  - Abdominal pain upper [Unknown]
  - Diabetes mellitus [Unknown]
  - Atrophic vulvovaginitis [Unknown]
  - Jaw disorder [Unknown]
  - Hypopituitarism [Unknown]
  - Hypercholesterolaemia [Unknown]
  - Type V hyperlipidaemia [Unknown]
  - Cellulitis [Unknown]
  - Back pain [Unknown]
  - Hyperparathyroidism primary [Unknown]
